FAERS Safety Report 4807318-9 (Version None)
Quarter: 2005Q4

REPORT INFORMATION
  Report Type: 
  Country: None (occurrence: None)
  Receive Date: 20051020
  Receipt Date: 20051010
  Transmission Date: 20060501
  Serious: Yes (Other)
  Sender: FDA-Public Use
  Company Number: 2005107944

PATIENT
  Age: 58 Year
  Sex: Male

DRUGS (1)
  1. CADUET [Suspect]
     Indication: ILL-DEFINED DISORDER
     Dosage: 5/40 MG

REACTIONS (4)
  - BLOOD PRESSURE INCREASED [None]
  - CORONARY ARTERY RESTENOSIS [None]
  - LOW DENSITY LIPOPROTEIN INCREASED [None]
  - SURGICAL PROCEDURE REPEATED [None]
